FAERS Safety Report 5506183-4 (Version None)
Quarter: 2007Q4

REPORT INFORMATION
  Report Type: 
  Country: None (occurrence: None)
  Receive Date: 20071105
  Receipt Date: 20071029
  Transmission Date: 20080405
  Serious: Yes (Death, Other)
  Sender: FDA-Public Use
  Company Number: PHHO2007BR18013

PATIENT
  Age: 84 Year
  Sex: Female

DRUGS (4)
  1. DIOVAN [Suspect]
     Indication: HYPERTENSION
     Dosage: 80 MG, UNK
     Route: 048
  2. LEVOTHYROXINE SODIUM [Concomitant]
  3. PLAVIX [Concomitant]
     Route: 048
  4. ZYLORIC [Concomitant]

REACTIONS (1)
  - ARRHYTHMIA [None]
